FAERS Safety Report 9776024 (Version 4)
Quarter: 2014Q1

REPORT INFORMATION
  Report Type: Spontaneous
  Country: JP (occurrence: JP)
  Receive Date: 20131220
  Receipt Date: 20140114
  Transmission Date: 20141002
  Serious: Yes (Other)
  Sender: FDA-Public Use
  Company Number: JP-PFIZER INC-2013357668

PATIENT
  Sex: 0

DRUGS (3)
  1. ZYVOX [Suspect]
     Dosage: 300 MG, 2X/DAY
     Route: 048
     Dates: start: 20131118, end: 20131202
  2. ZYVOX [Suspect]
     Dosage: 300 MG, 2X/DAY
     Route: 048
     Dates: start: 20131210
  3. VANCOMYCIN [Suspect]
     Dosage: UNK
     Dates: start: 20131202

REACTIONS (1)
  - Renal impairment [Recovered/Resolved]
